FAERS Safety Report 9770935 (Version 1)
Quarter: 2013Q4

REPORT INFORMATION
  Report Type: Spontaneous
  Country: VE (occurrence: VE)
  Receive Date: 20131218
  Receipt Date: 20131218
  Transmission Date: 20140711
  Serious: Yes (Other)
  Sender: FDA-Public Use
  Company Number: VE-PFIZER INC-2013358935

PATIENT
  Age: 64 Year
  Sex: Male

DRUGS (3)
  1. LIPITOR [Suspect]
     Dosage: 40 MG, UNK
  2. PLAVIX [Concomitant]
  3. ASPIRINE [Concomitant]

REACTIONS (3)
  - Prostatic disorder [Unknown]
  - Haemorrhage [Unknown]
  - Thrombosis [Unknown]
